FAERS Safety Report 19941714 (Version 1)
Quarter: 2021Q4

REPORT INFORMATION
  Report Type: Spontaneous
  Country: CA (occurrence: CA)
  Receive Date: 20211011
  Receipt Date: 20211011
  Transmission Date: 20220303
  Serious: Yes (Hospitalization, Other)
  Sender: FDA-Public Use
  Company Number: CA-TEVA-2019-CA-1063069

PATIENT
  Age: 61 Year
  Sex: Male

DRUGS (13)
  1. FLUTICASONE FUROATE [Suspect]
     Active Substance: FLUTICASONE FUROATE
     Indication: Product used for unknown indication
     Dosage: 1000 MICROGRAM DAILY;
     Route: 055
  2. FLUTICASONE FUROATE [Suspect]
     Active Substance: FLUTICASONE FUROATE
     Dosage: 1000 DOSAGE FORMS DAILY;
     Route: 055
  3. ALBUTEROL SULFATE\IPRATROPIUM BROMIDE [Suspect]
     Active Substance: ALBUTEROL SULFATE\IPRATROPIUM BROMIDE
     Indication: Product used for unknown indication
     Route: 065
  4. ACLIDINIUM BROMIDE\FORMOTEROL FUMARATE [Suspect]
     Active Substance: ACLIDINIUM BROMIDE\FORMOTEROL FUMARATE
     Indication: Product used for unknown indication
     Dosage: 2 DOSAGE FORMS DAILY;
     Route: 055
  5. FLOVENT DISKUS [Suspect]
     Active Substance: FLUTICASONE PROPIONATE
     Indication: Asthma
     Dosage: 1000 MICROGRAM DAILY;
     Route: 065
  6. FLOVENT DISKUS [Suspect]
     Active Substance: FLUTICASONE PROPIONATE
     Dosage: 1000 DOSAGE FORMS DAILY;
     Route: 065
  7. MEPOLIZUMAB [Suspect]
     Active Substance: MEPOLIZUMAB
     Indication: Asthma
     Dosage: 100 MILLIGRAM DAILY;
     Route: 065
  8. OLODATEROL HYDROCHLORIDE\TIOTROPIUM BROMIDE MONOHYDRATE [Suspect]
     Active Substance: OLODATEROL HYDROCHLORIDE\TIOTROPIUM BROMIDE MONOHYDRATE
     Indication: Product used for unknown indication
     Dosage: 1 DOSAGE FORMS DAILY;
     Route: 065
  9. UMECLIDINIUM BROMIDE\VILANTEROL TRIFENATATE [Suspect]
     Active Substance: UMECLIDINIUM BROMIDE\VILANTEROL TRIFENATATE
     Indication: Asthma
     Route: 065
  10. VENTOLIN [Suspect]
     Active Substance: ALBUTEROL SULFATE
     Indication: Asthma
     Route: 065
  11. PREDNISONE [Concomitant]
     Active Substance: PREDNISONE
     Indication: Dyspnoea
     Dosage: 18 MILLIGRAM DAILY;
     Route: 065
  12. PREDNISONE [Concomitant]
     Active Substance: PREDNISONE
     Indication: Asthma
  13. AZITHROMYCIN ANHYDROUS [Concomitant]
     Active Substance: AZITHROMYCIN ANHYDROUS
     Indication: Product used for unknown indication
     Route: 065

REACTIONS (26)
  - Abdominal discomfort [Unknown]
  - Asthma [Unknown]
  - Full blood count abnormal [Recovering/Resolving]
  - Breath sounds abnormal [Unknown]
  - Bronchiectasis [Unknown]
  - Dyspnoea [Unknown]
  - Headache [Unknown]
  - Heart rate increased [Unknown]
  - Hypertension [Unknown]
  - Infection [Unknown]
  - Influenza [Unknown]
  - Lung disorder [Unknown]
  - Lung hyperinflation [Recovering/Resolving]
  - Malaise [Unknown]
  - Obstructive airways disorder [Recovering/Resolving]
  - Obstructive airways disorder [Unknown]
  - Productive cough [Unknown]
  - Respiratory disorder [Unknown]
  - Snoring [Unknown]
  - Sputum discoloured [Recovering/Resolving]
  - Flatulence [Unknown]
  - Blood test abnormal [Unknown]
  - Wheezing [Unknown]
  - Therapeutic product effect incomplete [Unknown]
  - Drug ineffective [Unknown]
  - Therapeutic product effect decreased [Unknown]
